FAERS Safety Report 5745749-3 (Version None)
Quarter: 2008Q2

REPORT INFORMATION
  Report Type: 
  Country: None (occurrence: None)
  Receive Date: 20080519
  Receipt Date: 20080321
  Transmission Date: 20081010
  Serious: No
  Sender: FDA-Public Use
  Company Number: TPA2008A00370

PATIENT
  Age: 43 Year
  Sex: Female
  Weight: 57.6068 kg

DRUGS (2)
  1. ROZEREM [Suspect]
     Indication: INSOMNIA
     Dosage: 8 MG, QHS 30 MINUTES BEFORE BEDTIME, PER ORAL
     Route: 048
     Dates: start: 20080320
  2. MULTIVITAMIN [Concomitant]

REACTIONS (3)
  - FATIGUE [None]
  - MIDDLE INSOMNIA [None]
  - POOR QUALITY SLEEP [None]
